FAERS Safety Report 19836999 (Version 2)
Quarter: 2021Q3

REPORT INFORMATION
  Report Type: Report from Study
  Country: DE (occurrence: DE)
  Receive Date: 20210914
  Receipt Date: 20210917
  Transmission Date: 20211014
  Serious: Yes (Other)
  Sender: FDA-Public Use
  Company Number: DE-GILEAD-2021-0548028

PATIENT
  Sex: Female
  Weight: 110 kg

DRUGS (1)
  1. SACITUZUMAB GOVITECAN. [Suspect]
     Active Substance: SACITUZUMAB GOVITECAN
     Indication: TRIPLE NEGATIVE BREAST CANCER
     Dosage: 1260 MG
     Route: 042
     Dates: start: 20210701, end: 20210902

REACTIONS (3)
  - Drug ineffective [Unknown]
  - Disease progression [Unknown]
  - Metastases to liver [Unknown]
